FAERS Safety Report 12047207 (Version 1)
Quarter: 2016Q1

REPORT INFORMATION
  Report Type: Spontaneous
  Country: US (occurrence: US)
  Receive Date: 20160208
  Receipt Date: 20160208
  Transmission Date: 20160526
  Serious: Yes (Hospitalization, Other)
  Sender: FDA-Public Use
  Company Number: US-BAYER-2016-018308

PATIENT
  Age: 70 Year
  Sex: Female
  Weight: 107.94 kg

DRUGS (6)
  1. HYDROCHLOROTHIAZIDE. [Concomitant]
     Active Substance: HYDROCHLOROTHIAZIDE
     Indication: HYPERTENSION
     Dosage: UNK
  2. SPIRONOLACTONE. [Concomitant]
     Active Substance: SPIRONOLACTONE
     Indication: HYPERTENSION
  3. BAYER GENUINE ASPIRIN [Suspect]
     Active Substance: ASPIRIN
     Dosage: 325 MG, QD
     Route: 048
     Dates: start: 2005
  4. VYTORIN [Suspect]
     Active Substance: EZETIMIBE\SIMVASTATIN
     Indication: HYPERLIPIDAEMIA
     Dosage: 10MG/80MG, QD
     Route: 048
     Dates: start: 2011
  5. UBIDECARENONE [Concomitant]
     Active Substance: UBIDECARENONE
     Indication: CORONARY ARTERY DISEASE
     Dosage: UNK
  6. OMEPRAZOLE. [Concomitant]
     Active Substance: OMEPRAZOLE
     Indication: GASTROOESOPHAGEAL REFLUX DISEASE
     Dosage: UNK

REACTIONS (12)
  - Peripheral vascular disorder [None]
  - Ankylosing spondylitis [None]
  - Swollen tongue [Recovered/Resolved]
  - Menopausal symptoms [None]
  - Idiopathic angioedema [Recovered/Resolved]
  - Gastrooesophageal reflux disease [None]
  - Hypertension [None]
  - Seasonal allergy [None]
  - Arthralgia [None]
  - Intermittent claudication [None]
  - Type 2 diabetes mellitus [None]
  - Osteoarthritis [None]

NARRATIVE: CASE EVENT DATE: 2005
